FAERS Safety Report 20030972 (Version 1)
Quarter: 2021Q4

REPORT INFORMATION
  Report Type: Spontaneous
  Country: FR (occurrence: None)
  Receive Date: 20211103
  Receipt Date: 20211103
  Transmission Date: 20220303
  Serious: Yes (Hospitalization)
  Sender: FDA-Public Use
  Company Number: 2021A794942

PATIENT
  Age: 3 Month
  Sex: Male

DRUGS (3)
  1. ESOMEPRAZOLE [Suspect]
     Active Substance: ESOMEPRAZOLE
     Indication: Gastrooesophageal reflux disease
     Dosage: 4 MILLIGRAM, 1/DAY
     Route: 048
  2. ESOMEPRAZOLE [Suspect]
     Active Substance: ESOMEPRAZOLE
     Indication: Oesophagitis
     Dosage: 4 MILLIGRAM, 1/DAY
     Route: 048
  3. GAVISCON [Concomitant]
     Active Substance: ALUMINUM HYDROXIDE\MAGNESIUM CARBONATE
     Indication: Product used for unknown indication
     Dosage: 7 DOSAGE FORM, 1/DAY

REACTIONS (4)
  - Screaming [Recovered/Resolved]
  - Abdominal pain upper [Unknown]
  - Product use issue [Recovered/Resolved]
  - Therapeutic product effect decreased [Unknown]
